FAERS Safety Report 19945440 (Version 1)
Quarter: 2021Q4

REPORT INFORMATION
  Report Type: Report from Study
  Country: None (occurrence: US)
  Receive Date: 20211012
  Receipt Date: 20211012
  Transmission Date: 20220303
  Serious: Yes (Other)
  Sender: FDA-Public Use
  Company Number: US-ABBVIE-21K-163-4106150-00

PATIENT
  Sex: Male

DRUGS (3)
  1. LUPRON DEPOT [Interacting]
     Active Substance: LEUPROLIDE ACETATE
     Indication: Product used for unknown indication
     Route: 065
  2. ENZALUTAMIDE [Interacting]
     Active Substance: ENZALUTAMIDE
     Indication: Prostate cancer
     Route: 048
     Dates: start: 20210514
  3. TADALAFIL [Interacting]
     Active Substance: TADALAFIL
     Indication: Product used for unknown indication
     Route: 065

REACTIONS (10)
  - Erectile dysfunction [Unknown]
  - Anxiety [Unknown]
  - Drug interaction [Unknown]
  - Depression [Unknown]
  - Fatigue [Unknown]
  - Urinary tract infection [Unknown]
  - Hot flush [Unknown]
  - Nocturia [Unknown]
  - Mood swings [Recovered/Resolved]
  - Insomnia [Not Recovered/Not Resolved]

NARRATIVE: CASE EVENT DATE: 20210101
